FAERS Safety Report 10440726 (Version 1)
Quarter: 2014Q3

REPORT INFORMATION
  Report Type: Spontaneous
  Country: US (occurrence: None)
  Receive Date: 20140908
  Receipt Date: 20140908
  Transmission Date: 20150326
  Serious: Yes (Disabling)
  Sender: FDA-Public Use
  Company Number: None

PATIENT
  Age: 7 Year
  Sex: Female
  Weight: 28.12 kg

DRUGS (1)
  1. POLYETHYLENE GLYCOL 3350. [Suspect]
     Active Substance: POLYETHYLENE GLYCOL 3350
     Indication: CONSTIPATION
     Dosage: 1-2 CAPFULS ONCE OR TWICE/DAY TAKEN BY MOUTH
     Route: 048
     Dates: start: 20140829, end: 20140904

REACTIONS (3)
  - Heart rate increased [None]
  - Chest pain [None]
  - Anxiety [None]

NARRATIVE: CASE EVENT DATE: 20140904
